FAERS Safety Report 19249391 (Version 1)
Quarter: 2021Q2

REPORT INFORMATION
  Report Type: Spontaneous
  Country: US (occurrence: US)
  Receive Date: 20210512
  Receipt Date: 20210512
  Transmission Date: 20210717
  Serious: No
  Sender: FDA-Public Use
  Company Number: US-MORPHOSYS US-2021-MOR000966-US

PATIENT
  Age: 92 Year
  Sex: Female

DRUGS (1)
  1. MONJUVI [Suspect]
     Active Substance: TAFASITAMAB-CXIX
     Indication: PRODUCT USED FOR UNKNOWN INDICATION
     Dosage: UNK

REACTIONS (5)
  - Mean cell haemoglobin concentration increased [Unknown]
  - Dizziness [Unknown]
  - Headache [Unknown]
  - Haemoglobin increased [Unknown]
  - Red cell distribution width increased [Unknown]
